FAERS Safety Report 8105266-2 (Version None)
Quarter: 2012Q1

REPORT INFORMATION
  Report Type: 
  Country: None (occurrence: None)
  Receive Date: 20120201
  Receipt Date: 20120124
  Transmission Date: 20120608
  Serious: Yes (Hospitalization)
  Sender: FDA-Public Use
  Company Number: US-ABBOTT-12P-163-0890930-00

PATIENT
  Sex: Female
  Weight: 4.994 kg

DRUGS (2)
  1. METHOTREXATE [Concomitant]
     Indication: PRODUCT USED FOR UNKNOWN INDICATION
  2. HUMIRA [Suspect]
     Indication: CROHN'S DISEASE
     Route: 058
     Dates: start: 20110101

REACTIONS (5)
  - WEIGHT DECREASED [None]
  - SMALL INTESTINAL OBSTRUCTION [None]
  - INTESTINAL OBSTRUCTION [None]
  - WOUND INFECTION [None]
  - ABDOMINAL PAIN [None]
